FAERS Safety Report 22322238 (Version 3)
Quarter: 2023Q2

REPORT INFORMATION
  Report Type: Report from Study
  Country: DE (occurrence: DE)
  Receive Date: 20230516
  Receipt Date: 20230530
  Transmission Date: 20230722
  Serious: Yes (Death, Hospitalization, Other)
  Sender: FDA-Public Use
  Company Number: DE-CELLTRION INC.-2023DE009907

PATIENT

DRUGS (32)
  1. BEVACIZUMAB [Suspect]
     Active Substance: BEVACIZUMAB
     Indication: Neoplasm malignant
     Dosage: DATE OF MOST RECENT DOSE PRIOR TO AE/SAE ONSET: 01/FEB/2023
     Route: 042
     Dates: start: 20221102, end: 20230201
  2. LEUCOVORIN [Suspect]
     Active Substance: LEUCOVORIN
     Indication: Neoplasm malignant
     Dosage: DATE OF MOST RECENT DOSE PRIOR TO AE/SAE ONSET: 01/FEB/2023, 692 MG EVERY 2 WEEKS
     Route: 042
     Dates: start: 20221102, end: 20230201
  3. IRINOTECAN [Suspect]
     Active Substance: IRINOTECAN
     Indication: Neoplasm malignant
     Dosage: DOSE OF LAST ADMINISTERED PRIOR TO AE/SAE ONSET: 187 MG DATE OF MOST RECENT DOSE PRIOR TO AE/SAE ONS
     Route: 042
     Dates: start: 20221102, end: 20230201
  4. LEUCOVORIN CALCIUM [Suspect]
     Active Substance: LEUCOVORIN CALCIUM
     Indication: Neoplasm
     Dosage: UNK, EVERY 2 WEEKS
     Route: 042
     Dates: start: 20230201
  5. FLUOROURACIL [Suspect]
     Active Substance: FLUOROURACIL
     Indication: Neoplasm malignant
     Dosage: DATE OF MOST RECENT DOSE OF PRIOR TO AE/SAE ONSET: 01/02/2023
     Route: 042
     Dates: start: 20221102, end: 20230201
  6. LANTUS [Concomitant]
     Active Substance: INSULIN GLARGINE
     Indication: Diabetes mellitus
     Dosage: 100IE PEN
     Dates: end: 20230317
  7. SPIRONOLACTONE [Concomitant]
     Active Substance: SPIRONOLACTONE
     Dosage: 12.5 MG, 1 DAY
     Dates: start: 20221223, end: 20230317
  8. ELIQUIS [Concomitant]
     Active Substance: APIXABAN
  9. ATORVASTATIN [Concomitant]
     Active Substance: ATORVASTATIN
  10. MORPHINE [Concomitant]
     Active Substance: MORPHINE
     Indication: Pain
     Dosage: 50 MG
     Dates: start: 20230314, end: 20230317
  11. FENTANYL CITRATE [Concomitant]
     Active Substance: FENTANYL CITRATE
     Indication: Pain
     Dosage: 100 MG
     Dates: start: 20230306, end: 20230317
  12. DIMENHYDRINATE [Concomitant]
     Active Substance: DIMENHYDRINATE
     Indication: Nausea
     Dosage: 6.2 MG/ML
     Dates: start: 20230304, end: 20230316
  13. LOPERAMIDE [Concomitant]
     Active Substance: LOPERAMIDE
  14. FUROSEMIDE [Concomitant]
     Active Substance: FUROSEMIDE
  15. CITALOPRAM [Concomitant]
     Active Substance: CITALOPRAM HYDROBROMIDE
  16. PANTOPRAZOLE SODIUM [Concomitant]
     Active Substance: PANTOPRAZOLE SODIUM
  17. OXYCODONE [Concomitant]
     Active Substance: OXYCODONE
     Indication: Pain
     Dosage: 5 MG
     Dates: start: 20230304, end: 20230308
  18. METAMIZOLE [Concomitant]
     Active Substance: METAMIZOLE
  19. CHOLECALCIFEROL [Concomitant]
     Active Substance: CHOLECALCIFEROL
  20. FERROUS SULFATE [Concomitant]
     Active Substance: FERROUS SULFATE
  21. CANDESARTAN [Concomitant]
     Active Substance: CANDESARTAN
  22. ALBUMIN HUMAN [Concomitant]
     Active Substance: ALBUMIN HUMAN
     Dosage: UNK
     Dates: start: 20230217, end: 20230310
  23. NALOXONE [Concomitant]
     Active Substance: NALOXONE
     Indication: Pain
     Dosage: 2.5 MG (0.5 DAY)
     Dates: start: 20230304, end: 20230307
  24. AMPHOTERICIN B [Concomitant]
     Active Substance: AMPHOTERICIN B
     Dosage: 50 MG, EVERY 1 DAY
     Dates: start: 20230214
  25. FENTANYL [Concomitant]
     Active Substance: FENTANYL
     Indication: Pain
     Dosage: 25 G (0.33 WEEK)
     Dates: start: 20230306, end: 20230312
  26. POTASSIUM [Concomitant]
     Active Substance: POTASSIUM
     Indication: Blood potassium increased
     Dosage: 20 MMOL (0.33 DAY)
     Dates: start: 20230213, end: 20230214
  27. PROTAPHANE [Concomitant]
     Active Substance: INSULIN HUMAN
     Indication: Diabetes mellitus
     Dosage: 100IE
     Dates: start: 20230315
  28. METOCLOPRAMIDE [Concomitant]
     Active Substance: METOCLOPRAMIDE
  29. HEPARIN SODIUM [Concomitant]
     Active Substance: HEPARIN SODIUM
     Dosage: 5000IE (0.5 DAY)
     Dates: start: 20230210, end: 20230317
  30. OLIMEL PERIFER N4E [Concomitant]
     Dosage: UNK
     Dates: start: 20230210, end: 20230317
  31. LERCANIDIPINE [Concomitant]
     Active Substance: LERCANIDIPINE
  32. ONDANSETRON [Concomitant]
     Active Substance: ONDANSETRON

REACTIONS (2)
  - Neoplasm malignant [Fatal]
  - Sepsis [Fatal]

NARRATIVE: CASE EVENT DATE: 20230210
